FAERS Safety Report 19773174 (Version 1)
Quarter: 2021Q3

REPORT INFORMATION
  Report Type: Spontaneous
  Country: US (occurrence: US)
  Receive Date: 20210901
  Receipt Date: 20210901
  Transmission Date: 20211014
  Serious: Yes (Other)
  Sender: FDA-Public Use
  Company Number: US-GLENMARK PHARMACEUTICALS-2021GMK067516

PATIENT
  Age: 4 Month
  Sex: Male

DRUGS (2)
  1. SIROLIMUS. [Suspect]
     Active Substance: SIROLIMUS
     Indication: THROMBOCYTOPENIA
  2. SIROLIMUS. [Suspect]
     Active Substance: SIROLIMUS
     Indication: ENDOTHELIOMATOSIS
     Dosage: 0.4 MILLIGRAM PER KILOGRAM, BID
     Route: 065

REACTIONS (5)
  - Osteolysis [Unknown]
  - Skin lesion [Unknown]
  - Drug effective for unapproved indication [Unknown]
  - Central nervous system lesion [Unknown]
  - Papule [Unknown]
